FAERS Safety Report 17855487 (Version 1)
Quarter: 2020Q2

REPORT INFORMATION
  Report Type: Spontaneous
  Country: US (occurrence: US)
  Receive Date: 20200603
  Receipt Date: 20200603
  Transmission Date: 20200714
  Serious: Yes (Other)
  Sender: FDA-Public Use
  Company Number: None

PATIENT
  Age: 59 Year
  Sex: Female
  Weight: 81.45 kg

DRUGS (1)
  1. PRIVIGEN [Suspect]
     Active Substance: HUMAN IMMUNOGLOBULIN G
     Indication: SJOGREN^S SYNDROME
     Dosage: ?          OTHER FREQUENCY:EVERY OTHER WEEK;?
     Route: 041
     Dates: start: 20200602, end: 20200602

REACTIONS (3)
  - Peripheral swelling [None]
  - Blood pressure increased [None]
  - Oropharyngeal discomfort [None]

NARRATIVE: CASE EVENT DATE: 20200602
